FAERS Safety Report 7457138-4 (Version None)
Quarter: 2011Q2

REPORT INFORMATION
  Report Type: 
  Country: None (occurrence: None)
  Receive Date: 20110504
  Receipt Date: 20110421
  Transmission Date: 20111010
  Serious: Yes (Hospitalization)
  Sender: FDA-Public Use
  Company Number: US-ELI_LILLY_AND_COMPANY-US201104006696

PATIENT
  Sex: Female

DRUGS (1)
  1. FORTEO [Suspect]
     Indication: OSTEOPOROSIS
     Dosage: 20 UG, QD
     Route: 065
     Dates: start: 20110407

REACTIONS (8)
  - BLOOD GLUCOSE ABNORMAL [None]
  - CYSTITIS [None]
  - PULSE ABNORMAL [None]
  - VOMITING [None]
  - LUMBAR VERTEBRAL FRACTURE [None]
  - PYREXIA [None]
  - THORACIC VERTEBRAL FRACTURE [None]
  - BLOOD PRESSURE INCREASED [None]
